FAERS Safety Report 6400395-3 (Version None)
Quarter: 2009Q4

REPORT INFORMATION
  Report Type: 
  Country: None (occurrence: None)
  Receive Date: 20091014
  Receipt Date: 20091005
  Transmission Date: 20100525
  Serious: Yes (Death, Life-Threatening, Hospitalization)
  Sender: FDA-Public Use
  Company Number: DK-WYE-G04571509

PATIENT
  Sex: Female

DRUGS (3)
  1. GEMTUZUMAB OZOGAMICIN [Suspect]
     Indication: ACUTE MYELOID LEUKAEMIA
     Dosage: NOT MENTIONED
     Dates: start: 20090811, end: 20090821
  2. ARA-C [Concomitant]
  3. DAUNORUBICIN HCL [Interacting]

REACTIONS (4)
  - DRUG INTERACTION [None]
  - MARROW HYPERPLASIA [None]
  - PANCYTOPENIA [None]
  - SUBARACHNOID HAEMORRHAGE [None]
